FAERS Safety Report 6008263-6 (Version None)
Quarter: 2008Q4

REPORT INFORMATION
  Report Type: 
  Country: None (occurrence: None)
  Receive Date: 20081217
  Receipt Date: 20081212
  Transmission Date: 20090506
  Serious: Yes (Other)
  Sender: FDA-Public Use
  Company Number: FR-JNJFOC-20081203164

PATIENT
  Age: 78 Year
  Sex: Female

DRUGS (2)
  1. REMINYL LP [Suspect]
     Indication: DEMENTIA ALZHEIMER'S TYPE
     Route: 048
  2. DILTIAZEM HCL [Concomitant]
     Indication: HYPERTENSION

REACTIONS (2)
  - BRADYCARDIA [None]
  - EXTRASYSTOLES [None]
